FAERS Safety Report 19062942 (Version 1)
Quarter: 2021Q1

REPORT INFORMATION
  Report Type: Spontaneous
  Country: ES (occurrence: ES)
  Receive Date: 20210326
  Receipt Date: 20210326
  Transmission Date: 20210420
  Serious: Yes (Hospitalization)
  Sender: FDA-Public Use
  Company Number: ES-MYLANLABS-2021M1018102

PATIENT
  Age: 25 Year
  Sex: Male

DRUGS (15)
  1. ANIDULAFUNGIN [Suspect]
     Active Substance: ANIDULAFUNGIN
     Dosage: 100 MILLIGRAM, QD
     Route: 065
  2. MEROPENEM. [Concomitant]
     Active Substance: MEROPENEM
     Indication: PNEUMONIA
     Dosage: 500 MILLIGRAM, QD
     Route: 065
  3. AMIKACIN. [Concomitant]
     Active Substance: AMIKACIN
     Indication: PSEUDOMONAL BACTERAEMIA
  4. AMPHOTERICIN B. [Suspect]
     Active Substance: AMPHOTERICIN B
     Indication: ANTIFUNGAL PROPHYLAXIS
     Dosage: 270 MILLIGRAM, QD
     Route: 065
  5. MEROPENEM. [Concomitant]
     Active Substance: MEROPENEM
     Indication: EVIDENCE BASED TREATMENT
  6. VANCOMYCIN [Concomitant]
     Active Substance: VANCOMYCIN
     Indication: PNEUMONIA
     Dosage: 1 GRAM, QD
     Route: 065
  7. AMIKACIN. [Concomitant]
     Active Substance: AMIKACIN
     Indication: PNEUMONIA BACTERIAL
     Route: 065
  8. ANIDULAFUNGIN [Suspect]
     Active Substance: ANIDULAFUNGIN
     Indication: ANTIFUNGAL PROPHYLAXIS
     Dosage: 200 MILLIGRAM ON THE FIRST DAY
     Route: 065
  9. VANCOMYCIN [Concomitant]
     Active Substance: VANCOMYCIN
     Indication: EVIDENCE BASED TREATMENT
  10. VORICONAZOLE. [Suspect]
     Active Substance: VORICONAZOLE
     Dosage: 300 MILLIGRAM, QD
     Route: 065
  11. ACENOCOUMAROL [Concomitant]
     Active Substance: ACENOCOUMAROL
     Indication: SUPRAVENTRICULAR TACHYCARDIA
     Route: 065
  12. CEFTAZIDIME. [Concomitant]
     Active Substance: CEFTAZIDIME
     Indication: PSEUDOMONAS INFECTION
     Dosage: 1 GRAM, Q8H
     Route: 065
  13. VORICONAZOLE. [Suspect]
     Active Substance: VORICONAZOLE
     Indication: SCEDOSPORIUM INFECTION
     Dosage: 400 MILLIGRAM, QD ON FIRST DAY
     Route: 065
  14. CEFAZOLIN [Concomitant]
     Active Substance: CEFAZOLIN
     Indication: ANTIBIOTIC PROPHYLAXIS
     Route: 065
  15. TERBINAFINE. [Suspect]
     Active Substance: TERBINAFINE
     Indication: SCEDOSPORIUM INFECTION
     Route: 065

REACTIONS (1)
  - Drug ineffective [Unknown]
